FAERS Safety Report 18564896 (Version 1)
Quarter: 2020Q4

REPORT INFORMATION
  Report Type: Spontaneous
  Country: CN (occurrence: CN)
  Receive Date: 20201201
  Receipt Date: 20201201
  Transmission Date: 20210114
  Serious: Yes (Hospitalization, Other)
  Sender: FDA-Public Use
  Company Number: CN-PFIZER INC-2020471856

PATIENT
  Age: 72 Year
  Sex: Female
  Weight: 49 kg

DRUGS (5)
  1. TRAMADOL HYDROCHLORIDE. [Concomitant]
     Active Substance: TRAMADOL HYDROCHLORIDE
     Dosage: 100 MG, 2X/DAY (BID)
     Dates: start: 20201120
  2. CELECOXIB. [Concomitant]
     Active Substance: CELECOXIB
     Dosage: 200 MG, 2X/DAY (BID)
     Dates: start: 20201119
  3. MAI ZHI LING PIAN [Concomitant]
     Dosage: 300 MG, 3X/DAY (TID)
     Dates: start: 20201119
  4. METOCLOPRAMIDE. [Suspect]
     Active Substance: METOCLOPRAMIDE
     Dosage: 5 MG, 3X/DAY (TID)
     Route: 048
     Dates: start: 20201120, end: 20201125
  5. LYRICA [Suspect]
     Active Substance: PREGABALIN
     Indication: PROCEDURAL PAIN
     Dosage: 75 MG, 2X/DAY
     Route: 048
     Dates: start: 20201119, end: 20201125

REACTIONS (4)
  - Seizure [Recovering/Resolving]
  - Brain hypoxia [Recovering/Resolving]
  - Off label use [Unknown]
  - Extrapyramidal disorder [Recovering/Resolving]

NARRATIVE: CASE EVENT DATE: 20201119
